FAERS Safety Report 11025522 (Version 1)
Quarter: 2015Q2

REPORT INFORMATION
  Report Type: Spontaneous
  Country: US (occurrence: US)
  Receive Date: 20150414
  Receipt Date: 20150414
  Transmission Date: 20150821
  Serious: No
  Sender: FDA-Public Use
  Company Number: US-PFIZER INC-2015122598

PATIENT
  Age: 55 Year
  Sex: Female
  Weight: 77 kg

DRUGS (3)
  1. LISINOPRIL. [Concomitant]
     Active Substance: LISINOPRIL
     Dosage: 10 MG, UNK
  2. PREMARIN [Suspect]
     Active Substance: ESTROGENS, CONJUGATED
     Indication: DYSPAREUNIA
     Dosage: UNK
     Dates: start: 201503, end: 2015
  3. PRAVASTATIN [Concomitant]
     Active Substance: PRAVASTATIN\PRAVASTATIN SODIUM
     Dosage: UNK

REACTIONS (1)
  - Vulvovaginal burning sensation [Unknown]

NARRATIVE: CASE EVENT DATE: 201503
